FAERS Safety Report 13076064 (Version 5)
Quarter: 2017Q1

REPORT INFORMATION
  Report Type: Report from Study
  Country: US (occurrence: US)
  Receive Date: 20161230
  Receipt Date: 20170315
  Transmission Date: 20170428
  Serious: Yes (Hospitalization, Other)
  Sender: FDA-Public Use
  Company Number: US-RETROPHIN, INC.-2016RTN00029

PATIENT
  Age: 2 Year
  Sex: Female
  Weight: 12.7 kg

DRUGS (6)
  1. VITAMIN D [Concomitant]
     Active Substance: CHOLECALCIFEROL
  2. VITAMIN K [Concomitant]
     Active Substance: PHYTONADIONE
  3. CHOLIC ACID [Suspect]
     Active Substance: CHOLIC ACID
     Indication: INBORN ERROR OF METABOLISM
     Dosage: 100 MG, 1X/DAY  IN THE MORNING
     Dates: start: 20160727, end: 2017
  4. FOLIC ACID. [Concomitant]
     Active Substance: FOLIC ACID
  5. OTHER UNSPECIFIED MEDICATIONS [Concomitant]
     Active Substance: UNSPECIFIED INGREDIENT
  6. CHOLIC ACID [Suspect]
     Active Substance: CHOLIC ACID
     Dosage: 50 MG, 1X/DAY AT NIGHT
     Dates: start: 20160727, end: 2017

REACTIONS (5)
  - Complications of transplant surgery [Recovered/Resolved]
  - Diarrhoea [Not Recovered/Not Resolved]
  - Bleeding varicose vein [Not Recovered/Not Resolved]
  - Viral infection [Unknown]
  - Haematochezia [Not Recovered/Not Resolved]

NARRATIVE: CASE EVENT DATE: 2016
